FAERS Safety Report 23197966 (Version 1)
Quarter: 2023Q4

REPORT INFORMATION
  Report Type: Spontaneous
  Country: CA (occurrence: CA)
  Receive Date: 20231117
  Receipt Date: 20231117
  Transmission Date: 20240109
  Serious: Yes (Death, Life-Threatening)
  Sender: FDA-Public Use
  Company Number: CA-SANDOZ-SDZ2023CA055259

PATIENT
  Age: 82 Year
  Sex: Male

DRUGS (1)
  1. METFORMIN [Suspect]
     Active Substance: METFORMIN HYDROCHLORIDE
     Indication: Product used for unknown indication
     Dosage: 250 MG,2 EVERY 1 DAYS
     Route: 065

REACTIONS (1)
  - Lactic acidosis [Fatal]
